FAERS Safety Report 9296616 (Version 1)
Quarter: 2013Q2

REPORT INFORMATION
  Report Type: Spontaneous
  Country: BR (occurrence: BR)
  Receive Date: 20130517
  Receipt Date: 20130517
  Transmission Date: 20140414
  Serious: Yes (Other)
  Sender: FDA-Public Use
  Company Number: PHHY2013BR048846

PATIENT
  Sex: Male
  Weight: 45 kg

DRUGS (1)
  1. RITALIN [Suspect]
     Indication: DISTURBANCE IN ATTENTION
     Dosage: 1.5 DF, DAILY
     Route: 048

REACTIONS (2)
  - Autism [Not Recovered/Not Resolved]
  - Memory impairment [Recovered/Resolved]
